FAERS Safety Report 8810255 (Version 1)
Quarter: 2012Q4

REPORT INFORMATION
  Report Type: 
  Country: MY (occurrence: MY)
  Receive Date: 20120926
  Receipt Date: 20120926
  Transmission Date: 20130627
  Serious: Yes (Death, Other)
  Sender: FDA-Public Use
  Company Number: PHHO2004MY15740

PATIENT
  Sex: Male
  Weight: 50 kg

DRUGS (1)
  1. GLIVEC [Suspect]
     Indication: GASTROINTESTINAL STROMAL TUMOUR
     Dosage: 400 mg, QD
     Route: 048
     Dates: start: 20041022

REACTIONS (3)
  - Death [Fatal]
  - Dyspnoea [Unknown]
  - Dysphagia [Unknown]
